FAERS Safety Report 8372171 (Version 2)
Quarter: 2013Q1

REPORT INFORMATION
  Report Type: Report from Study
  Country: US (occurrence: US)
  Receive Date: 20120129
  Receipt Date: 20130129
  Transmission Date: 20140127
  Serious: No
  Sender: FDA-Public Use
  Company Number: US-ABBOTT-11P-163-0853898-00

PATIENT
  Age: 31 Year
  Sex: Female

DRUGS (4)
  1. HUMIRA 40 MG/0.8 ML PEN [Suspect]
     Indication: CROHN^S DISEASE
     Route: 058
     Dates: start: 201105
  2. PRENATAL VITAMINS [Concomitant]
     Indication: PREGNANCY
  3. IMODIUM [Concomitant]
     Indication: DIARRHOEA
  4. IMODIUM [Concomitant]
     Indication: CROHN^S DISEASE

REACTIONS (6)
  - Injection site bruising [Recovered/Resolved]
  - Injection site abscess [Unknown]
  - Injection site haemorrhage [Recovered/Resolved]
  - Protein urine [Not Recovered/Not Resolved]
  - Urine ketone body [Not Recovered/Not Resolved]
  - Wrong technique in drug usage process [Unknown]
